FAERS Safety Report 10633025 (Version 1)
Quarter: 2014Q4

REPORT INFORMATION
  Report Type: Spontaneous
  Country: US (occurrence: US)
  Receive Date: 20141205
  Receipt Date: 20141205
  Transmission Date: 20150529
  Serious: No
  Sender: FDA-Public Use
  Company Number: US-BRISTOL-MYERS SQUIBB COMPANY-21340898

PATIENT
  Age: 88 Year
  Sex: Female

DRUGS (8)
  1. LASIX [Concomitant]
     Active Substance: FUROSEMIDE
  2. OMEPRAZOLE. [Concomitant]
     Active Substance: OMEPRAZOLE
  3. BENAZEPRIL HCL [Concomitant]
     Active Substance: BENAZEPRIL HYDROCHLORIDE
  4. METOPROLOL [Concomitant]
     Active Substance: METOPROLOL
  5. ELIQUIS [Suspect]
     Active Substance: APIXABAN
     Indication: CEREBROVASCULAR ACCIDENT PROPHYLAXIS
  6. ASPIRIN. [Concomitant]
     Active Substance: ASPIRIN
  7. LEVOTHYROXINE [Concomitant]
     Active Substance: LEVOTHYROXINE
  8. POTASSIUM [Concomitant]
     Active Substance: POTASSIUM

REACTIONS (9)
  - Motor dysfunction [Unknown]
  - Asthenopia [Unknown]
  - Peripheral swelling [Unknown]
  - Amnesia [Unknown]
  - Drug intolerance [Unknown]
  - Disturbance in attention [Unknown]
  - Hallucination [Unknown]
  - Contusion [Unknown]
  - Blister [Unknown]

NARRATIVE: CASE EVENT DATE: 20140902
